FAERS Safety Report 19728300 (Version 1)
Quarter: 2021Q3

REPORT INFORMATION
  Report Type: Spontaneous
  Country: TW (occurrence: TW)
  Receive Date: 20210820
  Receipt Date: 20210820
  Transmission Date: 20211014
  Serious: Yes (Other)
  Sender: FDA-Public Use
  Company Number: TW-INCYTE CORPORATION-2021IN007518

PATIENT

DRUGS (3)
  1. VORICONAZOLE. [Suspect]
     Active Substance: VORICONAZOLE
     Indication: PNEUMONIA FUNGAL
     Dosage: UNK
     Route: 065
     Dates: start: 201805
  2. JAKAVI [Suspect]
     Active Substance: RUXOLITINIB
     Indication: PRODUCT USED FOR UNKNOWN INDICATION
     Dosage: UNK
     Route: 065
  3. PREDNISONE. [Concomitant]
     Active Substance: PREDNISONE
     Indication: GRAFT VERSUS HOST DISEASE IN LUNG
     Dosage: UNK
     Route: 065

REACTIONS (9)
  - Systemic mycosis [Unknown]
  - Chronic graft versus host disease [Unknown]
  - Concomitant disease aggravated [Unknown]
  - Oral herpes [Unknown]
  - Acute myeloid leukaemia [Unknown]
  - Hepatitis B reactivation [Unknown]
  - Graft versus host disease in liver [Unknown]
  - Hypertension [Unknown]
  - Graft versus host disease in lung [Unknown]

NARRATIVE: CASE EVENT DATE: 20180721
